FAERS Safety Report 8711262 (Version 4)
Quarter: 2012Q4

REPORT INFORMATION
  Report Type: Report from Study
  Country: PT (occurrence: PT)
  Receive Date: 20120807
  Receipt Date: 20121007
  Transmission Date: 20130627
  Serious: Yes (Death, Hospitalization)
  Sender: FDA-Public Use
  Company Number: PT-ELI_LILLY_AND_COMPANY-PT201207008274

PATIENT
  Age: 80 Year
  Sex: Male
  Weight: 66 kg

DRUGS (7)
  1. PEMETREXED [Suspect]
     Indication: NON-SMALL CELL LUNG CANCER STAGE III
     Dosage: 500 mg/m2, every 21 days
     Route: 042
     Dates: start: 20120402, end: 20120514
  2. CISPLATIN [Suspect]
     Indication: NON-SMALL CELL LUNG CANCER STAGE III
     Dosage: 75 mg/m2, every 21 days
     Route: 042
     Dates: start: 20120402, end: 20120514
  3. RADIATION [Suspect]
     Indication: NON-SMALL CELL LUNG CANCER STAGE III
     Dosage: 66 Gray, unknown
     Route: 065
     Dates: start: 20120402, end: 20120521
  4. PEMETREXED [Suspect]
     Indication: NON-SMALL CELL LUNG CANCER STAGE III
     Dosage: 500 mg/m2, every 21 days
     Route: 042
     Dates: start: 20120625, end: 20120716
  5. FOLIC ACID [Concomitant]
     Indication: PROPHYLAXIS
     Dosage: UNK
     Dates: start: 20120321
  6. VITAMIN B12 [Concomitant]
     Indication: PROPHYLAXIS
     Dosage: UNK
     Dates: start: 20120321
  7. DEXAMETHASONE [Concomitant]
     Indication: PROPHYLAXIS
     Dosage: UNK UNK, unknown
     Route: 065
     Dates: start: 20120715, end: 20120717

REACTIONS (1)
  - Acute respiratory distress syndrome [Fatal]
